FAERS Safety Report 10780740 (Version 5)
Quarter: 2016Q4

REPORT INFORMATION
  Report Type: Spontaneous
  Country: US (occurrence: US)
  Receive Date: 20150210
  Receipt Date: 20161208
  Transmission Date: 20170206
  Serious: No
  Sender: FDA-Public Use
  Company Number: US-PFIZER INC-2015049825

PATIENT
  Age: 71 Year
  Sex: Female

DRUGS (11)
  1. KETOCONAZOLE. [Concomitant]
     Active Substance: KETOCONAZOLE
     Dosage: AFFECTED AREA TWICE A DAY
  2. LYRICA [Suspect]
     Active Substance: PREGABALIN
     Indication: FIBROMYALGIA
     Dosage: 225 MG, 2X/DAY
     Dates: start: 2012
  3. OXYBUTYNIN [Concomitant]
     Active Substance: OXYBUTYNIN
     Dosage: 5 MG, 2X/DAY
     Route: 048
  4. CYANOCOBALAMIN. [Concomitant]
     Active Substance: CYANOCOBALAMIN
     Dosage: 1 ML, MONTHLY
     Route: 058
  5. LIPITOR [Concomitant]
     Active Substance: ATORVASTATIN CALCIUM
     Dosage: 20 MG, 1X/DAY
     Route: 048
  6. XYZAL [Concomitant]
     Active Substance: LEVOCETIRIZINE DIHYDROCHLORIDE
     Dosage: 5 MG, DAILY
     Route: 048
  7. FIORICET [Concomitant]
     Active Substance: ACETAMINOPHEN\BUTALBITAL\CAFFEINE
     Indication: HEADACHE
     Dosage: 50-300-40 MG CAPSULE, 1 DAILY AS NEEDED
     Route: 048
  8. BREO ELLIPTA [Concomitant]
     Active Substance: FLUTICASONE FUROATE\VILANTEROL TRIFENATATE
     Dosage: 100-25 MCG INH MCG/DOSE AT 1 PUFF ONCE DAILY
  9. CLOBETASOL [Concomitant]
     Active Substance: CLOBETASOL
     Dosage: APPLY TO AFFECTED AREA TWICE A DAY
  10. VITAMIN D2 [Concomitant]
     Active Substance: ERGOCALCIFEROL
     Dosage: 1.25 MG, WEEKLY
     Route: 048
  11. ALBUTEROL SULF HFA [Concomitant]
     Dosage: 90 MCG INH MCG/ACTUATION AT 2 PUFFS EVERY 4 HOURS AS NEEDED

REACTIONS (4)
  - Nasopharyngitis [Unknown]
  - Hypersensitivity [Unknown]
  - Asthenia [Unknown]
  - Myalgia [Unknown]
